FAERS Safety Report 13869037 (Version 1)
Quarter: 2017Q3

REPORT INFORMATION
  Report Type: Spontaneous
  Country: US (occurrence: US)
  Receive Date: 20170815
  Receipt Date: 20170815
  Transmission Date: 20171127
  Serious: No
  Sender: FDA-Public Use
  Company Number: US-ASTRAZENECA-2017SE81857

PATIENT
  Age: 819 Month
  Sex: Male
  Weight: 81.6 kg

DRUGS (4)
  1. MOVANTIK [Suspect]
     Active Substance: NALOXEGOL OXALATE
     Indication: DYSPEPSIA
     Route: 048
     Dates: start: 201708
  2. MOVANTIK [Suspect]
     Active Substance: NALOXEGOL OXALATE
     Indication: CONSTIPATION
     Route: 048
     Dates: start: 201707, end: 201708
  3. MOVANTIK [Suspect]
     Active Substance: NALOXEGOL OXALATE
     Indication: DYSPEPSIA
     Route: 048
     Dates: start: 201707, end: 201708
  4. MOVANTIK [Suspect]
     Active Substance: NALOXEGOL OXALATE
     Indication: CONSTIPATION
     Route: 048
     Dates: start: 201708

REACTIONS (5)
  - Renal pain [Not Recovered/Not Resolved]
  - Flatulence [Recovered/Resolved]
  - Off label use [Not Recovered/Not Resolved]
  - Nausea [Recovered/Resolved]
  - Product use in unapproved indication [Not Recovered/Not Resolved]

NARRATIVE: CASE EVENT DATE: 201707
